FAERS Safety Report 10245321 (Version 1)
Quarter: 2014Q2

REPORT INFORMATION
  Report Type: Spontaneous
  Country: CA (occurrence: CA)
  Receive Date: 20140618
  Receipt Date: 20140618
  Transmission Date: 20141212
  Serious: Yes (Other)
  Sender: FDA-Public Use
  Company Number: CA-BAXTER-2014BAX029770

PATIENT
  Age: 77 Year
  Sex: Female

DRUGS (3)
  1. GAMMAGARD S/D 0.5G [Suspect]
     Indication: IMMUNODEFICIENCY COMMON VARIABLE
     Dosage: 0.6 G/KG
     Route: 042
     Dates: start: 201109
  2. DIPHENHYDRAMINE [Suspect]
     Indication: PREMEDICATION
     Route: 065
  3. ACETAMINOPHEN [Suspect]
     Indication: PREMEDICATION
     Route: 065

REACTIONS (1)
  - Transfusion-related acute lung injury [Recovered/Resolved]
